FAERS Safety Report 8596821-4 (Version None)
Quarter: 2012Q3

REPORT INFORMATION
  Report Type: 
  Country: None (occurrence: None)
  Receive Date: 20120815
  Receipt Date: 20120813
  Transmission Date: 20120928
  Serious: Yes (Other)
  Sender: FDA-Public Use
  Company Number: ES-BRISTOL-MYERS SQUIBB COMPANY-16856361

PATIENT
  Age: 80 Year
  Sex: Male

DRUGS (15)
  1. DARBEPOETIN ALFA [Concomitant]
     Dates: start: 20100923
  2. BASILIXIMAB [Suspect]
     Indication: RENAL TRANSPLANT
     Dates: start: 20060728, end: 20060801
  3. LOSARTAN POTASSIUM [Concomitant]
     Dates: start: 20060818
  4. AMLODIPINE [Concomitant]
     Dates: start: 20070925
  5. CALCIUM CARBONATE [Concomitant]
     Dates: start: 20060731
  6. PANTOPRAZOLE [Concomitant]
     Dates: start: 20060831
  7. FUROSEMIDE [Concomitant]
     Dates: start: 20070627
  8. BELATACEPT [Suspect]
     Indication: RENAL TRANSPLANT
     Route: 042
     Dates: start: 20060728, end: 20110726
  9. VITAMIN B1 TAB [Concomitant]
     Dates: start: 20060807
  10. MYCOPHENOLATE MOFETIL [Suspect]
     Indication: RENAL TRANSPLANT
     Dates: start: 20060728
  11. STEROIDS [Suspect]
     Indication: RENAL TRANSPLANT
     Dates: start: 20060728
  12. DOXAZOSIN MESYLATE [Concomitant]
     Dates: start: 20100921
  13. ATORVASTATIN [Concomitant]
     Dates: start: 20100830
  14. CALCITRIOL [Concomitant]
     Dates: start: 20060804
  15. SALICYLATE [Concomitant]
     Dates: start: 20070726

REACTIONS (1)
  - LUNG CANCER METASTATIC [None]
